FAERS Safety Report 17814217 (Version 5)
Quarter: 2021Q3

REPORT INFORMATION
  Report Type: Spontaneous
  Country: FR (occurrence: FR)
  Receive Date: 20200521
  Receipt Date: 20210726
  Transmission Date: 20211014
  Serious: Yes (Hospitalization, Other)
  Sender: FDA-Public Use
  Company Number: FR-AUROBINDO-AUR-APL-2020-025305

PATIENT
  Age: 56 Year
  Sex: Male

DRUGS (19)
  1. PREDNISONE. [Suspect]
     Active Substance: PREDNISONE
     Indication: IMMUNOSUPPRESSANT DRUG THERAPY
     Dosage: 30 MILLIGRAM, TWO TIMES A DAY (60 MILLIGRAM, ONCE A DAY)
     Route: 065
  2. CICLOSPORIN [Suspect]
     Active Substance: CYCLOSPORINE
     Indication: IMMUNOSUPPRESSANT DRUG THERAPY
     Dosage: 125 MILLIGRAM, ONCE A DAY IN 2 DOSES
     Route: 065
  3. VORICONAZOLE. [Suspect]
     Active Substance: VORICONAZOLE
     Indication: IMMUNOSUPPRESSION
     Dosage: 600 MILLIGRAM, ONCE A DAY (300 MG BID)
     Route: 048
  4. AMPHOTERICIN B DEOXYCHOLATE [Concomitant]
     Active Substance: AMPHOTERICIN B
     Dosage: 5 MG/0.1 ML, GIVEN ON DAY 36
     Route: 031
  5. CASPOFUNGIN [Suspect]
     Active Substance: CASPOFUNGIN
     Indication: ANTIFUNGAL TREATMENT
     Dosage: 3 MILLIGRAM/KILOGRAM, ONCE A DAY
     Route: 042
  6. AZITHROMYCIN ANHYDROUS. [Concomitant]
     Active Substance: AZITHROMYCIN ANHYDROUS
     Indication: EVIDENCE BASED TREATMENT
     Dosage: EVERY WEEK
     Route: 065
  7. POSACONAZOLE [Concomitant]
     Active Substance: POSACONAZOLE
     Indication: ANTIFUNGAL TREATMENT
     Dosage: 0.19 MICROGRAM PER MILLIGRAM
     Route: 065
  8. AMPHOTERICIN B. [Suspect]
     Active Substance: AMPHOTERICIN B
     Indication: ASPERGILLUS INFECTION
     Dosage: 5 ?G/0.1ML AMPHOTERICIN B DESOXYCHOLATE (DAMB) OCULAR INJECTION, ON DAYS 14, 18, 21, 24, 29 AND 36
     Route: 031
  9. AMPHOTERICIN B. [Suspect]
     Active Substance: AMPHOTERICIN B
     Indication: ASPERGILLUS INFECTION
     Dosage: 3 MILLIGRAM, ONCE A DAY
     Route: 042
  10. CASPOFUNGIN [Suspect]
     Active Substance: CASPOFUNGIN
     Indication: ASPERGILLUS INFECTION
     Dosage: 0.02 MICROGRAM PER MILLIGRAM
     Route: 065
  11. AMPHOTERICIN B DEOXYCHOLATE [Concomitant]
     Active Substance: AMPHOTERICIN B
     Indication: ASPERGILLUS INFECTION
     Dosage: 5 MG/0.1 ML, ON DAYS 14 AND 18
     Route: 031
  12. VORICONAZOLE. [Suspect]
     Active Substance: VORICONAZOLE
     Indication: ASPERGILLUS INFECTION
     Dosage: 200 MILLIGRAM, TWO TIMES A DAY (400 MG,QD)
     Route: 048
  13. VORICONAZOLE. [Suspect]
     Active Substance: VORICONAZOLE
     Dosage: 300 MICROGRAM, TWO TIMES A DAY (ON DAY 4)
     Route: 048
  14. MYCOPHENOLATE MOFETIL. [Suspect]
     Active Substance: MYCOPHENOLATE MOFETIL
     Indication: IMMUNOSUPPRESSANT DRUG THERAPY
     Dosage: 1500 MILLIGRAM, ONCE A DAY
     Route: 065
  15. VORICONAZOLE. [Suspect]
     Active Substance: VORICONAZOLE
     Indication: ANTIFUNGAL TREATMENT
     Dosage: 0.12 MICROGRAM PER MILLIGRAM (300 MG BID ON DAY 4 )
     Route: 065
  16. AMPHOTERICIN B. [Suspect]
     Active Substance: AMPHOTERICIN B
     Indication: MYCOTIC ENDOPHTHALMITIS
     Dosage: 5 ?G/0.1ML AMPHOTERICIN B DESOXYCHOLATE (DAMB) OCULAR INJECTION, ON DAYS 14, 18, 21, 24, 29 AND 36
     Route: 047
  17. AMPHOTERICIN B. [Suspect]
     Active Substance: AMPHOTERICIN B
     Indication: ENDOPHTHALMITIS
  18. MYCOPHENOLATE MOFETIL. [Suspect]
     Active Substance: MYCOPHENOLATE MOFETIL
     Dosage: 750 MILLIGRAM, TWO TIMES A DAY
     Route: 065
  19. AMPHOTERICIN B DEOXYCHOLATE [Concomitant]
     Active Substance: AMPHOTERICIN B
     Indication: ENDOPHTHALMITIS
     Dosage: 5 MG/0.1 ML, GIVEN ON DAYS 21 AND 24
     Route: 031

REACTIONS (12)
  - Condition aggravated [Recovered/Resolved]
  - Product use issue [Unknown]
  - Eye injury [Unknown]
  - Therapeutic response decreased [Recovered/Resolved]
  - Transaminases increased [Recovered/Resolved]
  - Vitritis [Unknown]
  - Bronchopulmonary aspergillosis [Recovered/Resolved]
  - Systemic mycosis [Recovered/Resolved]
  - Overdose [Recovered/Resolved]
  - Endophthalmitis [Recovered/Resolved]
  - Aspergillus infection [Recovered/Resolved]
  - Visual acuity reduced [Unknown]
